FAERS Safety Report 4838649-4 (Version None)
Quarter: 2005Q4

REPORT INFORMATION
  Report Type: 
  Country: None (occurrence: None)
  Receive Date: 20051129
  Receipt Date: 20050811
  Transmission Date: 20060501
  Serious: No
  Sender: FDA-Public Use
  Company Number: US-GLAXOSMITHKLINE-A0569917A

PATIENT
  Age: 64 Year
  Sex: Male

DRUGS (1)
  1. COMMIT [Suspect]
     Dates: start: 20050622, end: 20050718

REACTIONS (3)
  - ANOREXIA [None]
  - HYPERSOMNIA [None]
  - NAUSEA [None]
